FAERS Safety Report 14328161 (Version 1)
Quarter: 2017Q4

REPORT INFORMATION
  Report Type: Report from Study
  Country: FR (occurrence: FR)
  Receive Date: 20171227
  Receipt Date: 20171227
  Transmission Date: 20180321
  Serious: Yes (Hospitalization, Other)
  Sender: FDA-Public Use
  Company Number: PHHO2016FR013869

PATIENT
  Age: 54 Year
  Sex: Male

DRUGS (4)
  1. NEORAL [Suspect]
     Active Substance: CYCLOSPORINE
     Dosage: 300 MG, QD
     Route: 048
     Dates: start: 20150901, end: 20150911
  2. NEORAL [Suspect]
     Active Substance: CYCLOSPORINE
     Dosage: 275 MG, QD
     Route: 048
     Dates: start: 20150912, end: 20151006
  3. EVEROLIMUS. [Suspect]
     Active Substance: EVEROLIMUS
     Indication: RENAL TRANSPLANT
     Dosage: 1.75 MG, QD
     Route: 048
     Dates: start: 20150825
  4. NEORAL [Suspect]
     Active Substance: CYCLOSPORINE
     Indication: RENAL TRANSPLANT
     Dosage: 325 MG, QD
     Route: 048
     Dates: start: 20150801, end: 20150831

REACTIONS (4)
  - Renal impairment [Recovering/Resolving]
  - Renal lymphocele [Recovered/Resolved]
  - Renal lymphocele [Recovering/Resolving]
  - Renal impairment [Recovered/Resolved with Sequelae]

NARRATIVE: CASE EVENT DATE: 20150831
